FAERS Safety Report 11321835 (Version 1)
Quarter: 2015Q3

REPORT INFORMATION
  Report Type: Spontaneous
  Country: US (occurrence: US)
  Receive Date: 20150729
  Receipt Date: 20150729
  Transmission Date: 20151125
  Serious: No
  Sender: FDA-Public Use
  Company Number: US-TEVA-581645USA

PATIENT
  Sex: Female

DRUGS (1)
  1. COPAXONE [Suspect]
     Active Substance: GLATIRAMER ACETATE
     Indication: MULTIPLE SCLEROSIS
     Dosage: UNKNOWN FORM STRENGTH

REACTIONS (8)
  - Skin reaction [Unknown]
  - Muscular weakness [Unknown]
  - Injection site reaction [Unknown]
  - Contusion [Unknown]
  - Rash [Unknown]
  - Urticaria [Unknown]
  - Pyrexia [Unknown]
  - Hypoaesthesia [Unknown]
